FAERS Safety Report 6178649-8 (Version None)
Quarter: 2009Q2

REPORT INFORMATION
  Report Type: 
  Country: None (occurrence: None)
  Receive Date: 20090430
  Receipt Date: 20090423
  Transmission Date: 20091009
  Serious: Yes (Hospitalization)
  Sender: FDA-Public Use
  Company Number: 2009US001163

PATIENT
  Age: 65 Year
  Sex: Male
  Weight: 127 kg

DRUGS (12)
  1. AMEVIVE [Suspect]
     Indication: PSORIASIS
     Dosage: 15 MG, WEEKLY, INTRAMUSCULAR ; 15 MG, WEEKLY, INTRAMUSCULAR
     Route: 030
     Dates: start: 20050215, end: 20050504
  2. AMEVIVE [Suspect]
     Indication: PSORIASIS
     Dosage: 15 MG, WEEKLY, INTRAMUSCULAR ; 15 MG, WEEKLY, INTRAMUSCULAR
     Route: 030
     Dates: start: 20050923, end: 20051214
  3. INSULIN (INSULIN) [Concomitant]
  4. COUMADIN [Concomitant]
  5. AVANDIA [Concomitant]
  6. NORVASC [Concomitant]
  7. LASIX [Concomitant]
  8. ATENOLOL [Concomitant]
  9. LOVASTATIN [Concomitant]
  10. ANDROGEL [Concomitant]
  11. ASPIRIN [Concomitant]
  12. TRICOR [Concomitant]

REACTIONS (5)
  - BRONCHITIS [None]
  - DIABETES MELLITUS INADEQUATE CONTROL [None]
  - OEDEMA PERIPHERAL [None]
  - RESPIRATORY TRACT INFECTION [None]
  - VIRAL INFECTION [None]
